FAERS Safety Report 7024677-X (Version None)
Quarter: 2010Q4

REPORT INFORMATION
  Report Type: 
  Country: None (occurrence: None)
  Receive Date: 20101001
  Receipt Date: 20100922
  Transmission Date: 20110411
  Serious: No
  Sender: FDA-Public Use
  Company Number: US-PFIZER INC-2010114487

PATIENT
  Sex: Female
  Weight: 86 kg

DRUGS (5)
  1. LYRICA [Suspect]
     Indication: HERPES ZOSTER
     Dosage: UNK
     Route: 048
     Dates: start: 20100825, end: 20100101
  2. ALEVE (CAPLET) [Concomitant]
     Dosage: UNK MG, UNK
     Route: 048
     Dates: start: 20100101
  3. EFFEXOR [Concomitant]
     Indication: ANXIETY
     Dosage: UNK
     Route: 048
  4. LIPITOR [Concomitant]
     Indication: BLOOD CHOLESTEROL ABNORMAL
     Dosage: 20 MG, DAILY
     Route: 048
  5. RANITIDINE [Concomitant]
     Indication: DYSPEPSIA
     Dosage: UNK, AS NEEDED

REACTIONS (8)
  - DRUG INEFFECTIVE [None]
  - FATIGUE [None]
  - FEELING ABNORMAL [None]
  - HYPOAESTHESIA ORAL [None]
  - RASH [None]
  - SOMNOLENCE [None]
  - SUSPICIOUSNESS [None]
  - THINKING ABNORMAL [None]
